FAERS Safety Report 15458599 (Version 1)
Quarter: 2018Q3

REPORT INFORMATION
  Report Type: Spontaneous
  Country: US (occurrence: US)
  Receive Date: 20180930
  Receipt Date: 20180930
  Transmission Date: 20181020
  Serious: Yes (Disabling, Other)
  Sender: FDA-Public Use
  Company Number: None

PATIENT
  Age: 63 Year
  Sex: Male
  Weight: 91.35 kg

DRUGS (6)
  1. HYDROCODONE/ACETAMINOPHEN 10?325 T [Suspect]
     Active Substance: ACETAMINOPHEN\HYDROCODONE
     Indication: PAIN
     Dosage: ?          QUANTITY:1 DF DOSAGE FORM;?
     Route: 048
  2. CARISIPODOL [Concomitant]
  3. IPUPROFIN [Concomitant]
  4. TUMERIC [Concomitant]
     Active Substance: HERBALS\TURMERIC
  5. ALPRAZOLAM. [Concomitant]
     Active Substance: ALPRAZOLAM
  6. GINGER ROOT [Concomitant]
     Active Substance: GINGER

REACTIONS (5)
  - Drug ineffective [None]
  - Drug withdrawal syndrome [None]
  - Product substitution issue [None]
  - Back injury [None]
  - Impaired work ability [None]

NARRATIVE: CASE EVENT DATE: 20180907
